FAERS Safety Report 10216557 (Version 1)
Quarter: 2014Q2

REPORT INFORMATION
  Report Type: Spontaneous
  Country: US (occurrence: US)
  Receive Date: 20140604
  Receipt Date: 20140604
  Transmission Date: 20141212
  Serious: Yes (Other)
  Sender: FDA-Public Use
  Company Number: US-BAYER-2014-081158

PATIENT
  Sex: Female

DRUGS (1)
  1. MIRENA [Suspect]
     Indication: MENOPAUSE
     Dosage: 20 MCG/24HR, CONT
     Route: 015
     Dates: start: 2007, end: 20140523

REACTIONS (3)
  - Post procedural haemorrhage [None]
  - Off label use [None]
  - Device misuse [None]
